FAERS Safety Report 9890813 (Version 1)
Quarter: 2014Q1

REPORT INFORMATION
  Report Type: Spontaneous
  Country: US (occurrence: None)
  Receive Date: 20140210
  Receipt Date: 20140210
  Transmission Date: 20141002
  Serious: Yes (Hospitalization)
  Sender: FDA-Public Use
  Company Number: None

PATIENT
  Age: 29 Year
  Sex: Male

DRUGS (1)
  1. NUCYNTA [Suspect]

REACTIONS (4)
  - Pancreatitis [None]
  - Pancreatitis chronic [None]
  - Tooth loss [None]
  - Tooth disorder [None]
